FAERS Safety Report 16030076 (Version 1)
Quarter: 2019Q1

REPORT INFORMATION
  Report Type: Spontaneous
  Country: US (occurrence: US)
  Receive Date: 20190304
  Receipt Date: 20190304
  Transmission Date: 20190418
  Serious: Yes (Hospitalization)
  Sender: FDA-Public Use
  Company Number: US-BAUSCH-BL-2019-006263

PATIENT
  Sex: Female

DRUGS (3)
  1. BESIVANCE [Suspect]
     Active Substance: BESIFLOXACIN
     Indication: PSEUDOMONAS INFECTION
  2. BESIVANCE [Suspect]
     Active Substance: BESIFLOXACIN
     Indication: CONJUNCTIVITIS BACTERIAL
  3. BESIVANCE [Suspect]
     Active Substance: BESIFLOXACIN
     Indication: STAPHYLOCOCCAL INFECTION
     Dosage: FOR 7 DAYS
     Route: 065

REACTIONS (1)
  - Ulcerative keratitis [Unknown]
